FAERS Safety Report 14076668 (Version 1)
Quarter: 2017Q4

REPORT INFORMATION
  Report Type: Spontaneous
  Country: BR (occurrence: BR)
  Receive Date: 20171011
  Receipt Date: 20171011
  Transmission Date: 20180321
  Serious: Yes (Hospitalization)
  Sender: FDA-Public Use
  Company Number: BR-EGALET US INC-BR-2017EGA000945

PATIENT
  Age: 25 Year
  Sex: Female

DRUGS (6)
  1. FENTANYL. [Suspect]
     Active Substance: FENTANYL
     Indication: SEDATION
     Dosage: 50 ?G, UNK
  2. DISTILLED WATER [Concomitant]
     Indication: LOCAL ANAESTHESIA
     Dosage: 3 ML, UNK
  3. MORPHINE SULFATE. [Suspect]
     Active Substance: MORPHINE SULFATE
     Indication: LOCAL ANAESTHESIA
     Dosage: 2 MG, UNK
  4. MIDAZOLAM [Suspect]
     Active Substance: MIDAZOLAM HYDROCHLORIDE
     Indication: SEDATION
     Dosage: 4 MG, UNK
  5. BUPIVACAINE. [Suspect]
     Active Substance: BUPIVACAINE
     Indication: LOCAL ANAESTHESIA
     Dosage: 0.5 %, UNK
  6. FENTANYL. [Suspect]
     Active Substance: FENTANYL
     Indication: LOCAL ANAESTHESIA

REACTIONS (1)
  - Cardio-respiratory arrest [Recovering/Resolving]
